FAERS Safety Report 9649872 (Version 2)
Quarter: 2014Q2

REPORT INFORMATION
  Report Type: Spontaneous
  Country: US (occurrence: US)
  Receive Date: 20131028
  Receipt Date: 20140418
  Transmission Date: 20141212
  Serious: Yes (Other)
  Sender: FDA-Public Use
  Company Number: US-NAPPMUNDI-USA-2013-0100310

PATIENT
  Sex: Male

DRUGS (2)
  1. OXYCONTIN TABLETS [Suspect]
     Indication: PAIN
     Dosage: UNK
     Route: 048
     Dates: start: 2009
  2. VICODIN [Suspect]
     Indication: PAIN
     Dosage: UNK
     Dates: start: 2009

REACTIONS (7)
  - Drug dependence [Unknown]
  - Substance abuse [Unknown]
  - Decreased interest [Unknown]
  - Sudden onset of sleep [Unknown]
  - Euphoric mood [Unknown]
  - Memory impairment [Unknown]
  - Dysarthria [Unknown]
